FAERS Safety Report 15791092 (Version 1)
Quarter: 2019Q1

REPORT INFORMATION
  Report Type: Spontaneous
  Country: US (occurrence: US)
  Receive Date: 20190104
  Receipt Date: 20190104
  Transmission Date: 20190417
  Serious: Yes (Other)
  Sender: FDA-Public Use
  Company Number: PHHY2018US198044

PATIENT
  Age: 70 Year
  Sex: Male

DRUGS (3)
  1. BRIMONIDINE [Suspect]
     Active Substance: BRIMONIDINE TARTRATE
     Indication: EXFOLIATION GLAUCOMA
     Dosage: UNK UNK, BID
     Route: 065
  2. LATANOPROST. [Concomitant]
     Active Substance: LATANOPROST
     Indication: EXFOLIATION GLAUCOMA
     Dosage: UNK
     Route: 065
  3. DORZOLAMIDE,TIMOLOL [Suspect]
     Active Substance: DORZOLAMIDE\TIMOLOL
     Indication: EXFOLIATION GLAUCOMA
     Dosage: UNK UNK, BID
     Route: 065

REACTIONS (2)
  - Hypotony of eye [Recovered/Resolved]
  - Choroidal effusion [Recovered/Resolved]
